FAERS Safety Report 26104917 (Version 1)
Quarter: 2025Q4

REPORT INFORMATION
  Report Type: Spontaneous
  Country: US (occurrence: US)
  Receive Date: 20251130
  Receipt Date: 20251130
  Transmission Date: 20260117
  Serious: Yes (Hospitalization, Other)
  Sender: ALKEM
  Company Number: None

PATIENT
  Age: 62 Year
  Sex: Female

DRUGS (2)
  1. MYCOPHENOLATE MOFETIL [Suspect]
     Active Substance: MYCOPHENOLATE MOFETIL
     Indication: Autoimmune hepatitis
     Dosage: 1000 MILLIGRAM, BID
     Route: 065
  2. BUDESONIDE [Suspect]
     Active Substance: BUDESONIDE
     Indication: Autoimmune hepatitis
     Dosage: 6 MILLIGRAM, QD
     Route: 048

REACTIONS (3)
  - Cytomegalovirus gastritis [Recovered/Resolved]
  - Cytomegalovirus duodenitis [Recovered/Resolved]
  - Cytomegalovirus colitis [Recovered/Resolved]
